FAERS Safety Report 23214295 (Version 2)
Quarter: 2024Q2

REPORT INFORMATION
  Report Type: Spontaneous
  Country: US (occurrence: US)
  Receive Date: 20231121
  Receipt Date: 20240418
  Transmission Date: 20240715
  Serious: No
  Sender: FDA-Public Use
  Company Number: US-PFIZER INC-202300370173

PATIENT
  Age: 73 Year
  Sex: Male
  Weight: 95.238 kg

DRUGS (4)
  1. PAXLOVID [Suspect]
     Active Substance: NIRMATRELVIR\RITONAVIR
     Indication: COVID-19 treatment
     Dosage: UNK
     Dates: start: 20231103, end: 20231108
  2. LOSARTAN [Concomitant]
     Active Substance: LOSARTAN
     Dosage: UNK (FOR SEVERAL YEARS)
  3. BAUSCH + LOMB MOISTURE EYES [Concomitant]
     Dosage: UNK
  4. DOCTOR^S BEST ARTEMISININ [Concomitant]
     Dosage: UNK

REACTIONS (2)
  - COVID-19 [Recovered/Resolved]
  - Disease recurrence [Recovered/Resolved]

NARRATIVE: CASE EVENT DATE: 20231113
